FAERS Safety Report 9793036 (Version 2)
Quarter: 2015Q3

REPORT INFORMATION
  Report Type: Spontaneous
  Country: US (occurrence: US)
  Receive Date: 20140102
  Receipt Date: 20150817
  Transmission Date: 20151125
  Serious: No
  Sender: FDA-Public Use
  Company Number: US-GILEAD-2013-0091001

PATIENT
  Age: 69 Year
  Sex: Female

DRUGS (13)
  1. SYNTHROID [Concomitant]
     Active Substance: LEVOTHYROXINE SODIUM
  2. OMEPRAZOLE. [Concomitant]
     Active Substance: OMEPRAZOLE
  3. DIOVAN [Concomitant]
     Active Substance: VALSARTAN
  4. LASIX [Concomitant]
     Active Substance: FUROSEMIDE
  5. VERAPAMIL [Concomitant]
     Active Substance: VERAPAMIL HYDROCHLORIDE
  6. URSODIOL. [Concomitant]
     Active Substance: URSODIOL
  7. OXYGEN. [Concomitant]
     Active Substance: OXYGEN
  8. DOXICYCLINE                        /00055701/ [Suspect]
     Active Substance: DOXYCYCLINE
  9. VITAMIN D [Concomitant]
     Active Substance: CHOLECALCIFEROL
  10. POTASSIUM [Concomitant]
     Active Substance: POTASSIUM
  11. LETAIRIS [Suspect]
     Active Substance: AMBRISENTAN
     Indication: PULMONARY HYPERTENSION
     Dosage: 10 MG, QD
     Route: 065
     Dates: start: 20120516
  12. WELLBUTRIN [Concomitant]
     Active Substance: BUPROPION HYDROCHLORIDE
  13. WARFARIN [Concomitant]
     Active Substance: WARFARIN

REACTIONS (3)
  - Cough [Not Recovered/Not Resolved]
  - Bronchitis [Not Recovered/Not Resolved]
  - Dyspnoea [Not Recovered/Not Resolved]

NARRATIVE: CASE EVENT DATE: 20131215
